FAERS Safety Report 12140686 (Version 1)
Quarter: 2016Q1

REPORT INFORMATION
  Report Type: Spontaneous
  Country: CA (occurrence: None)
  Receive Date: 20160302
  Receipt Date: 20160302
  Transmission Date: 20160526
  Serious: Yes (Hospitalization)
  Sender: FDA-Public Use
  Company Number: None

PATIENT
  Age: 50 Year
  Sex: Male
  Weight: 89 kg

DRUGS (1)
  1. CISPLATIN. [Suspect]
     Active Substance: CISPLATIN
     Dates: end: 20160202

REACTIONS (4)
  - Muscle spasms [None]
  - Dyspnoea [None]
  - Fatigue [None]
  - Pulmonary embolism [None]

NARRATIVE: CASE EVENT DATE: 20160216
